FAERS Safety Report 4458094-3 (Version None)
Quarter: 2004Q3

REPORT INFORMATION
  Report Type: 
  Country: None (occurrence: None)
  Receive Date: 20040922
  Receipt Date: 20040902
  Transmission Date: 20050211
  Serious: Yes (Hospitalization)
  Sender: FDA-Public Use
  Company Number: JP_040202680

PATIENT
  Age: 84 Year
  Sex: Female
  Weight: 29 kg

DRUGS (3)
  1. ONCOVIN [Suspect]
     Indication: LYMPHOMA
     Dosage: 1 MG OTHER
     Dates: start: 20031218, end: 20031218
  2. DOXORUBICIN HCL [Concomitant]
  3. ENDOXAN [Concomitant]

REACTIONS (3)
  - ILEAL PERFORATION [None]
  - MALAISE [None]
  - TUMOUR NECROSIS [None]
